FAERS Safety Report 8962424 (Version 1)
Quarter: 2012Q4

REPORT INFORMATION
  Report Type: 
  Country: NO (occurrence: NO)
  Receive Date: 20121213
  Receipt Date: 20121213
  Transmission Date: 20130627
  Serious: Yes (Other)
  Sender: FDA-Public Use
  Company Number: NO-PERRIGO-12NO010445

PATIENT
  Age: 55 Year
  Sex: Male

DRUGS (6)
  1. LANSOPRAZOLE [Suspect]
     Indication: GASTROOESOPHAGEAL REFLUX DISEASE
     Dosage: 30 mg, qd
     Route: 048
  2. ESOMEPRAZOLE [Suspect]
     Indication: GASTROOESOPHAGEAL REFLUX DISEASE
     Dosage: 40 mg, qd
     Route: 048
  3. LISINOPRIL [Concomitant]
     Indication: HYPERTENSION
     Dosage: 40 mg, qd
     Route: 048
  4. IRBESARTAN [Concomitant]
     Indication: HYPERTENSION
     Dosage: 30 mg, qd
     Route: 048
  5. AMLODIPINE [Concomitant]
     Indication: HYPERTENSION
     Dosage: 10 mg, qd
     Route: 048
  6. ACETYLSALICYLIC ACID [Concomitant]
     Indication: HYPERTENSION
     Dosage: 160 mg, qd
     Route: 048

REACTIONS (4)
  - Neuroendocrine tumour [Recovered/Resolved]
  - Hypergastrinaemia [Recovered/Resolved]
  - Enterochromaffin cell hyperplasia [Recovered/Resolved]
  - Incorrect drug administration duration [Recovered/Resolved]
